FAERS Safety Report 24742262 (Version 1)
Quarter: 2024Q4

REPORT INFORMATION
  Report Type: Spontaneous
  Country: US (occurrence: US)
  Receive Date: 20241217
  Receipt Date: 20241217
  Transmission Date: 20250115
  Serious: No
  Sender: PHARMING GROUP
  Company Number: US-PHARMING-PHAUS2024001097

PATIENT

DRUGS (2)
  1. RUCONEST [Suspect]
     Active Substance: CONESTAT ALFA
     Indication: Immunodeficiency common variable
     Dosage: 4200 IU, AS NEEDED
     Route: 042
     Dates: start: 202403
  2. RUCONEST [Suspect]
     Active Substance: CONESTAT ALFA
     Indication: Hereditary angioedema

REACTIONS (4)
  - Skin disorder [Unknown]
  - Vein collapse [Unknown]
  - Vascular access site complication [Unknown]
  - Product use in unapproved indication [Unknown]
